FAERS Safety Report 8258893-6 (Version None)
Quarter: 2012Q2

REPORT INFORMATION
  Report Type: 
  Country: None (occurrence: None)
  Receive Date: 20120404
  Receipt Date: 20120330
  Transmission Date: 20120825
  Serious: Yes (Hospitalization)
  Sender: FDA-Public Use
  Company Number: US-B.I. PHARMACEUTICALS,INC./RIDGEFIELD-2012-BP-03786BP

PATIENT
  Sex: Female

DRUGS (7)
  1. ESTROGEN [Concomitant]
  2. SPIRIVA [Suspect]
     Indication: CHRONIC OBSTRUCTIVE PULMONARY DISEASE
     Dosage: 18 MCG
     Route: 055
     Dates: start: 20110101
  3. ZITHROMAX [Concomitant]
  4. SYMBICORT [Concomitant]
  5. MEDROL [Concomitant]
  6. NICOTINE [Concomitant]
  7. ZOLOFT [Concomitant]
     Dosage: 50 MG

REACTIONS (4)
  - PNEUMONIA [None]
  - CONDITION AGGRAVATED [None]
  - ACUTE MYOCARDIAL INFARCTION [None]
  - CHRONIC OBSTRUCTIVE PULMONARY DISEASE [None]
